FAERS Safety Report 10083244 (Version 1)
Quarter: 2014Q2

REPORT INFORMATION
  Report Type: Spontaneous
  Country: US (occurrence: None)
  Receive Date: 20140415
  Receipt Date: 20140415
  Transmission Date: 20141212
  Serious: Yes (Other)
  Sender: FDA-Public Use
  Company Number: 2014P1002948

PATIENT
  Age: 19 Year
  Sex: Female

DRUGS (1)
  1. DEXAMETHASONE [Suspect]
     Indication: NAUSEA
     Dosage: X1
     Route: 042

REACTIONS (3)
  - Hyperglycaemia [None]
  - Insulin resistance [None]
  - Pancreatic disorder [None]
